FAERS Safety Report 19020950 (Version 2)
Quarter: 2021Q1

REPORT INFORMATION
  Report Type: Spontaneous
  Country: FR (occurrence: FR)
  Receive Date: 20210317
  Receipt Date: 20210330
  Transmission Date: 20210420
  Serious: Yes (Life-Threatening, Hospitalization)
  Sender: FDA-Public Use
  Company Number: FR-PFIZER INC-2021275476

PATIENT
  Age: 72 Year
  Sex: Female

DRUGS (8)
  1. DIPYRIDAMOLE. [Interacting]
     Active Substance: DIPYRIDAMOLE
     Dosage: UNK
  2. PRAZOSIN HCL [Suspect]
     Active Substance: PRAZOSIN HYDROCHLORIDE
     Dosage: UNK
  3. L?THYROXINE [LEVOTHYROXINE SODIUM] [Interacting]
     Active Substance: LEVOTHYROXINE SODIUM
     Dosage: 25 UG, DAILY
  4. TERBUTALINE [Interacting]
     Active Substance: TERBUTALINE
     Dosage: 10 MG, DAILY
  5. PHENYLEPHRINE [Interacting]
     Active Substance: PHENYLEPHRINE HYDROCHLORIDE
     Dosage: UNK
  6. FUROSEMIDE. [Interacting]
     Active Substance: FUROSEMIDE
     Dosage: UNK
  7. TOLOXATONE [Interacting]
     Active Substance: TOLOXATONE
     Dosage: 400 MG, DAILY
  8. BEZAFIBRATE [Interacting]
     Active Substance: BEZAFIBRATE
     Dosage: UNK

REACTIONS (2)
  - Phaeochromocytoma [Recovered/Resolved]
  - Drug interaction [Recovered/Resolved]
